FAERS Safety Report 4754988-X (Version None)
Quarter: 2005Q3

REPORT INFORMATION
  Report Type: 
  Country: None (occurrence: None)
  Receive Date: 20050825
  Receipt Date: 20050810
  Transmission Date: 20060218
  Serious: Yes (Other)
  Sender: FDA-Public Use
  Company Number: S05-UKI-03004-01

PATIENT
  Sex: Male

DRUGS (2)
  1. CITALOPRAM HYDROBROMIDE [Suspect]
  2. MEMANTINE HCL [Suspect]

REACTIONS (1)
  - PLEUROTHOTONUS [None]
